FAERS Safety Report 7209630-5 (Version None)
Quarter: 2011Q1

REPORT INFORMATION
  Report Type: 
  Country: None (occurrence: None)
  Receive Date: 20110104
  Receipt Date: 20101220
  Transmission Date: 20110831
  Serious: No
  Sender: FDA-Public Use
  Company Number: US-PFIZER INC-2010176415

PATIENT
  Age: 52 Year
  Sex: Female

DRUGS (2)
  1. LIPITOR [Suspect]
     Dosage: 20 MG, UNK
  2. ZOCOR [Suspect]
     Dosage: UNK

REACTIONS (2)
  - HYPOAESTHESIA [None]
  - MUSCLE SPASMS [None]
